FAERS Safety Report 13550440 (Version 1)
Quarter: 2017Q2

REPORT INFORMATION
  Report Type: Spontaneous
  Country: US (occurrence: US)
  Receive Date: 20170516
  Receipt Date: 20170516
  Transmission Date: 20170830
  Serious: Yes (Hospitalization)
  Sender: FDA-Public Use
  Company Number: None

PATIENT
  Age: 39 Year
  Sex: Female
  Weight: 60.78 kg

DRUGS (2)
  1. DOXIL [Suspect]
     Active Substance: DOXORUBICIN HYDROCHLORIDE
     Dates: end: 20170420
  2. TYLENOL-3 [Concomitant]

REACTIONS (3)
  - Abdominal pain [None]
  - Small intestinal obstruction [None]
  - Constipation [None]

NARRATIVE: CASE EVENT DATE: 20170508
